FAERS Safety Report 7364888-7 (Version None)
Quarter: 2011Q1

REPORT INFORMATION
  Report Type: 
  Country: None (occurrence: None)
  Receive Date: 20110321
  Receipt Date: 20110315
  Transmission Date: 20110831
  Serious: Yes (Life-Threatening, Hospitalization)
  Sender: FDA-Public Use
  Company Number: FR-ASTRAZENECA-2011SE14432

PATIENT
  Age: 33 Year
  Sex: Female

DRUGS (5)
  1. VANCOMYCIN [Suspect]
     Indication: ANAL ABSCESS
     Route: 042
     Dates: end: 20110224
  2. XYLOCAINE [Suspect]
     Indication: ANAESTHESIA
     Route: 042
     Dates: start: 20110224, end: 20110225
  3. SUFENTANIL CITRATE [Suspect]
     Indication: ANAESTHESIA
     Route: 042
     Dates: start: 20110224, end: 20110225
  4. DIPRIVAN [Suspect]
     Indication: ANAESTHESIA
     Route: 042
     Dates: start: 20110224, end: 20110225
  5. SUCCINYLCHOLINE CHLORIDE [Suspect]
     Indication: ANAESTHESIA
     Route: 042
     Dates: start: 20110224, end: 20110225

REACTIONS (1)
  - BRONCHOSPASM [None]
